FAERS Safety Report 4462170-9 (Version None)
Quarter: 2004Q3

REPORT INFORMATION
  Report Type: 
  Country: None (occurrence: None)
  Receive Date: 20040924
  Receipt Date: 20040913
  Transmission Date: 20050211
  Serious: Yes (Other)
  Sender: FDA-Public Use
  Company Number: TEST00204002278

PATIENT
  Age: 32 Year
  Sex: Male
  Weight: 135 kg

DRUGS (7)
  1. TESTOSTERONE [Suspect]
     Indication: BLOOD TESTOSTERONE DECREASED
     Dosage: 5 G QD TD
     Route: 062
     Dates: start: 20030601, end: 20040601
  2. LOTREL (LOTREL) [Concomitant]
  3. HYDROCHLOROTHIAZID (HYDROCHLOROTHIAZID) [Concomitant]
  4. STRATTERA (STRATTERA) [Concomitant]
  5. VIAGRA (SILDEFANIL CITRATE) [Concomitant]
  6. NASONEX [Concomitant]
  7. ULTRAVATE (ULORETASOL PROPIONATE) [Concomitant]

REACTIONS (2)
  - AZOOSPERMIA [None]
  - INFERTILITY [None]
